FAERS Safety Report 4711627-1 (Version None)
Quarter: 2005Q3

REPORT INFORMATION
  Report Type: 
  Country: None (occurrence: None)
  Receive Date: 20050708
  Receipt Date: 20050623
  Transmission Date: 20060218
  Serious: Yes (Hospitalization)
  Sender: FDA-Public Use
  Company Number: 2005BI010257

PATIENT
  Age: 54 Year
  Sex: Female

DRUGS (9)
  1. AVONEX [Suspect]
     Indication: MULTIPLE SCLEROSIS
     Dosage: 30 UG;QW;IM
     Route: 030
     Dates: start: 20040921
  2. NEURONTIN [Concomitant]
  3. NITROFURANTOIN [Concomitant]
  4. MACROCRYSTAL [Concomitant]
  5. CALCIUM WITH VITAMIN D [Concomitant]
  6. FLEXERIL [Concomitant]
  7. EXTRA STRENGTH TYLENOL [Concomitant]
  8. LEVOXYL [Concomitant]
  9. FOSAMAX [Concomitant]

REACTIONS (4)
  - HERNIA [None]
  - INCISION SITE HAEMORRHAGE [None]
  - OSTEOPOROSIS [None]
  - SURGICAL PROCEDURE REPEATED [None]
